FAERS Safety Report 9529617 (Version 3)
Quarter: 2015Q1

REPORT INFORMATION
  Report Type: Spontaneous
  Country: US (occurrence: US)
  Receive Date: 20130917
  Receipt Date: 20150224
  Transmission Date: 20150721
  Serious: Yes (Hospitalization, Other)
  Sender: FDA-Public Use
  Company Number: US-009507513-1309USA005394

PATIENT
  Sex: Female
  Weight: 85.26 kg

DRUGS (7)
  1. FLURBIPROFEN. [Concomitant]
     Active Substance: FLURBIPROFEN
     Indication: PROPHYLAXIS
     Dosage: UNK
     Dates: start: 1990
  2. FOSAMAX [Suspect]
     Active Substance: ALENDRONATE SODIUM
     Indication: OSTEOPOROSIS
     Dosage: 10 MG, QD
     Route: 048
     Dates: start: 19951205
  3. ALENDRONATE SODIUM. [Suspect]
     Active Substance: ALENDRONATE SODIUM
     Indication: OSTEOPOROSIS
     Dosage: 70 MG, UNK
     Route: 048
     Dates: start: 20080626, end: 20111127
  4. ASPIRIN. [Concomitant]
     Active Substance: ASPIRIN
     Dosage: 81 MG, QD
     Dates: start: 2002
  5. CALTRATE WITH VITAMIN D [Concomitant]
     Active Substance: CALCIUM CARBONATE\VITAMIN D
     Dosage: UNK, QD
     Dates: start: 1994
  6. FOSAMAX [Suspect]
     Active Substance: ALENDRONATE SODIUM
     Dosage: 70 MG, QW
     Route: 048
     Dates: end: 20081028
  7. VITAMINS (UNSPECIFIED) [Concomitant]
     Active Substance: VITAMINS
     Dosage: UNK, QD
     Dates: start: 1995

REACTIONS (45)
  - Chest pain [Unknown]
  - Fluid retention [Unknown]
  - Tendonitis [Unknown]
  - Nausea [Unknown]
  - Intramedullary rod insertion [Unknown]
  - Arthritis [Unknown]
  - Anxiety [Unknown]
  - Urinary tract infection [Unknown]
  - Spinal osteoarthritis [Unknown]
  - Adhesion [Unknown]
  - Deep vein thrombosis [Unknown]
  - Hyperlipidaemia [Unknown]
  - Back pain [Not Recovered/Not Resolved]
  - Nausea [Unknown]
  - Surgery [Unknown]
  - Knee arthroplasty [Unknown]
  - Pollakiuria [Unknown]
  - Incontinence [Unknown]
  - Cataract [Unknown]
  - Hip arthroplasty [Unknown]
  - Spinal fusion surgery [Unknown]
  - Femur fracture [Unknown]
  - Low turnover osteopathy [Unknown]
  - Blood potassium decreased [Unknown]
  - Pelvic pain [Unknown]
  - Cataract operation [Unknown]
  - Macular degeneration [Unknown]
  - Pulmonary embolism [Unknown]
  - Vascular operation [Unknown]
  - Ankle fracture [Unknown]
  - Bacterial infection [Unknown]
  - Pain [Unknown]
  - Glaucoma [Unknown]
  - Fracture delayed union [Unknown]
  - Foot fracture [Unknown]
  - Visual acuity reduced [Unknown]
  - Insomnia [Unknown]
  - Cervix carcinoma [Unknown]
  - Essential hypertension [Unknown]
  - Foot fracture [Unknown]
  - Depression [Unknown]
  - Drug ineffective [Unknown]
  - Osteoarthritis [Unknown]
  - Oedema peripheral [Unknown]
  - Myalgia [Unknown]

NARRATIVE: CASE EVENT DATE: 1995
